FAERS Safety Report 7433525-5 (Version None)
Quarter: 2011Q2

REPORT INFORMATION
  Report Type: 
  Country: None (occurrence: None)
  Receive Date: 20110422
  Receipt Date: 20110411
  Transmission Date: 20111010
  Serious: Yes (Death)
  Sender: FDA-Public Use
  Company Number: AU-NICOBRDEV-2011-05511

PATIENT
  Age: 84 Year
  Sex: Female

DRUGS (1)
  1. OXYTROL [Suspect]
     Indication: STRESS URINARY INCONTINENCE
     Dosage: UNK

REACTIONS (1)
  - HYPERTHERMIA [None]
